FAERS Safety Report 26013883 (Version 3)
Quarter: 2025Q4

REPORT INFORMATION
  Report Type: Spontaneous
  Country: US (occurrence: US)
  Receive Date: 20251108
  Receipt Date: 20251221
  Transmission Date: 20260117
  Serious: Yes (Other)
  Sender: GLAXOSMITHKLINE
  Company Number: US-GLAXOSMITHKLINE INC-US2025138199

PATIENT
  Sex: Female
  Weight: 95.238 kg

DRUGS (4)
  1. NUCALA [Suspect]
     Active Substance: MEPOLIZUMAB
     Indication: Nasal polyps
     Dosage: 100 MG
  2. SHINGRIX [Suspect]
     Active Substance: RECOMBINANT VARICELLA ZOSTER VIRUS (VZV) GLYCOPROTEIN E
     Indication: Prophylaxis
  3. SHINGRIX [4]
     Active Substance: RECOMBINANT VARICELLA ZOSTER VIRUS (VZV) GLYCOPROTEIN E
     Indication: Prophylaxis
  4. DUPIXENT [Concomitant]
     Active Substance: DUPILUMAB

REACTIONS (9)
  - Ophthalmic herpes zoster [Not Recovered/Not Resolved]
  - Intraocular pressure increased [Unknown]
  - Influenza like illness [Unknown]
  - Herpes zoster disseminated [Unknown]
  - Chalazion [Unknown]
  - Pain of skin [Unknown]
  - Pruritus [Unknown]
  - Incomplete course of vaccination [Unknown]
  - Drug ineffective [Unknown]
